FAERS Safety Report 10692016 (Version 1)
Quarter: 2015Q1

REPORT INFORMATION
  Report Type: Spontaneous
  Country: CA (occurrence: CA)
  Receive Date: 20150106
  Receipt Date: 20150106
  Transmission Date: 20150720
  Serious: Yes (Life-Threatening)
  Sender: FDA-Public Use
  Company Number: CA-ROCHE-1517200

PATIENT
  Age: 48 Year
  Sex: Male
  Weight: 86 kg

DRUGS (3)
  1. NAPROXEN. [Suspect]
     Active Substance: NAPROXEN
     Indication: PAIN IN EXTREMITY
     Dosage: THERAPY DURATION: 1 DAY
     Route: 048
  2. NAPROXEN. [Suspect]
     Active Substance: NAPROXEN
     Indication: HEADACHE
  3. NAPROXEN. [Suspect]
     Active Substance: NAPROXEN
     Indication: ARTHRALGIA

REACTIONS (11)
  - Bradycardia [Unknown]
  - Swollen tongue [Unknown]
  - Urticaria [Unknown]
  - Blood pressure decreased [Unknown]
  - Lip swelling [Unknown]
  - Swelling face [Unknown]
  - Dyspnoea [Unknown]
  - Pruritus [Unknown]
  - Local swelling [Unknown]
  - Oxygen saturation decreased [Unknown]
  - Speech disorder [Unknown]
